FAERS Safety Report 9227831 (Version 2)
Quarter: 2013Q2

REPORT INFORMATION
  Report Type: Report from Study
  Country: AR (occurrence: AR)
  Receive Date: 20130412
  Receipt Date: 20130415
  Transmission Date: 20140414
  Serious: Yes (Death)
  Sender: FDA-Public Use
  Company Number: PHHO2013AR005062

PATIENT
  Age: 65 Year
  Sex: Female
  Weight: 93 kg

DRUGS (6)
  1. ALISKIREN [Suspect]
     Indication: CARDIAC FAILURE
     Dosage: UNK
     Route: 048
     Dates: start: 20121119, end: 20130325
  2. PLATSULA [Concomitant]
     Indication: ULCER
     Dosage: ON DEMAND
     Dates: start: 20120527, end: 20130325
  3. FUROSEMIDE [Concomitant]
     Indication: CARDIAC FAILURE CHRONIC
     Dosage: 40 MG, QD
     Route: 048
     Dates: start: 20120720, end: 20130325
  4. CARVEDILOL [Concomitant]
     Indication: CORONARY ARTERY DISEASE
     Dosage: 50 MG, BID
     Route: 048
     Dates: start: 20120720, end: 20130325
  5. GLIBENCLAMIDA [Concomitant]
     Indication: DIABETES MELLITUS
     Dosage: 5 MG, QD
     Route: 048
     Dates: start: 20100620, end: 20130325
  6. METFORMIN [Concomitant]
     Indication: DIABETES MELLITUS
     Dosage: 1500 MG, QD
     Route: 048
     Dates: start: 20100620, end: 20130325

REACTIONS (1)
  - Death [Fatal]
